FAERS Safety Report 12840081 (Version 1)
Quarter: 2016Q4

REPORT INFORMATION
  Report Type: Spontaneous
  Country: US (occurrence: US)
  Receive Date: 20161012
  Receipt Date: 20161012
  Transmission Date: 20170207
  Serious: No
  Sender: FDA-Public Use
  Company Number: US-EISAI MEDICAL RESEARCH-EC-2016-021075

PATIENT
  Age: 6 Year
  Sex: Male
  Weight: 20 kg

DRUGS (4)
  1. BANZEL [Suspect]
     Active Substance: RUFINAMIDE
     Route: 048
     Dates: start: 20160922, end: 201610
  2. BANZEL [Suspect]
     Active Substance: RUFINAMIDE
     Indication: ATONIC SEIZURES
     Route: 048
     Dates: start: 20160915, end: 20160921
  3. ZARONTIN [Concomitant]
     Active Substance: ETHOSUXIMIDE
  4. VIGABATRIN [Concomitant]
     Active Substance: VIGABATRIN

REACTIONS (1)
  - Seizure [Recovered/Resolved]

NARRATIVE: CASE EVENT DATE: 201609
